FAERS Safety Report 19996414 (Version 2)
Quarter: 2021Q4

REPORT INFORMATION
  Report Type: Spontaneous
  Country: US (occurrence: US)
  Receive Date: 20211026
  Receipt Date: 20211102
  Transmission Date: 20220303
  Serious: No
  Sender: FDA-Public Use
  Company Number: US-PFIZER INC-202101049380

PATIENT
  Age: 54 Year
  Sex: Female

DRUGS (1)
  1. XELJANZ [Suspect]
     Active Substance: TOFACITINIB CITRATE
     Indication: Colitis ulcerative
     Dosage: 10 MG, 2X/DAY
     Route: 048
     Dates: start: 202105

REACTIONS (6)
  - Condition aggravated [Recovering/Resolving]
  - Pain [Unknown]
  - Dizziness [Unknown]
  - Rash [Unknown]
  - Discouragement [Unknown]
  - Depressed mood [Unknown]
